FAERS Safety Report 6795570-2 (Version None)
Quarter: 2010Q2

REPORT INFORMATION
  Report Type: 
  Country: None (occurrence: None)
  Receive Date: 20100625
  Receipt Date: 20100615
  Transmission Date: 20101027
  Serious: Yes (Hospitalization)
  Sender: FDA-Public Use
  Company Number: IT-JNJFOC-20100605592

PATIENT
  Age: 46 Year
  Sex: Male

DRUGS (3)
  1. REMICADE [Suspect]
     Indication: CROHN'S DISEASE
     Dosage: CYCLE IV
     Route: 042
  2. AZATHIOPRINE [Suspect]
     Indication: CROHN'S DISEASE
     Route: 048
  3. ASACOL [Suspect]
     Indication: CROHN'S DISEASE
     Route: 048

REACTIONS (1)
  - NON-HODGKIN'S LYMPHOMA [None]
